FAERS Safety Report 15051606 (Version 5)
Quarter: 2018Q3

REPORT INFORMATION
  Report Type: Spontaneous
  Country: US (occurrence: US)
  Receive Date: 20180622
  Receipt Date: 20180726
  Transmission Date: 20181010
  Serious: No
  Sender: FDA-Public Use
  Company Number: US-BEH-2018092056

PATIENT
  Age: 45 Year
  Sex: Female
  Weight: 83.2 kg

DRUGS (28)
  1. HIZENTRA [Suspect]
     Active Substance: HUMAN IMMUNOGLOBULIN G
     Dosage: UNK
     Route: 065
     Dates: start: 20180309, end: 20180309
  2. SINGULAIR [Concomitant]
     Active Substance: MONTELUKAST SODIUM
  3. REQUIP [Concomitant]
     Active Substance: ROPINIROLE HYDROCHLORIDE
  4. NATURE?THROID [Concomitant]
     Active Substance: THYROID, PORCINE
  5. HIZENTRA [Suspect]
     Active Substance: HUMAN IMMUNOGLOBULIN G
     Indication: SELECTIVE IGG SUBCLASS DEFICIENCY
     Dosage: 8 G, QW
     Route: 058
     Dates: start: 20180222, end: 20180301
  6. HIZENTRA [Suspect]
     Active Substance: HUMAN IMMUNOGLOBULIN G
     Dosage: 8 G, TOT
     Route: 058
     Dates: start: 20180612, end: 20180612
  7. HIZENTRA [Suspect]
     Active Substance: HUMAN IMMUNOGLOBULIN G
     Dosage: 4 G, TOT
     Route: 058
     Dates: start: 20180626, end: 20180626
  8. EPINEPHRINE. [Concomitant]
     Active Substance: EPINEPHRINE
  9. VITAMIN D3 [Concomitant]
     Active Substance: CHOLECALCIFEROL
  10. HIZENTRA [Suspect]
     Active Substance: HUMAN IMMUNOGLOBULIN G
     Dosage: 8 G, TOT
     Route: 058
     Dates: start: 20180301, end: 20180301
  11. HIZENTRA [Suspect]
     Active Substance: HUMAN IMMUNOGLOBULIN G
     Dosage: 8 G, TOT
     Route: 058
     Dates: start: 20180412, end: 20180412
  12. HIZENTRA [Suspect]
     Active Substance: HUMAN IMMUNOGLOBULIN G
     Dosage: 8 UNK, UNK
     Route: 058
     Dates: start: 20180302
  13. DIPHENHYDRAMINE. [Concomitant]
     Active Substance: DIPHENHYDRAMINE
  14. ZYRTEC [Concomitant]
     Active Substance: CETIRIZINE HYDROCHLORIDE
     Indication: PREMEDICATION
     Route: 048
  15. LIDOCAINE. [Concomitant]
     Active Substance: LIDOCAINE
  16. PROBIOTIC                          /06395501/ [Concomitant]
     Active Substance: BIFIDOBACTERIUM ANIMALIS LACTIS
  17. L?METHYLFOLATE CALCIUM [Concomitant]
     Active Substance: LEVOMEFOLATE CALCIUM
  18. BENADRYL [Concomitant]
     Active Substance: DIPHENHYDRAMINE HYDROCHLORIDE
     Indication: PREMEDICATION
     Route: 048
  19. FLONASE [Concomitant]
     Active Substance: FLUTICASONE PROPIONATE
  20. FLUOXETINE [Concomitant]
     Active Substance: FLUOXETINE HYDROCHLORIDE
  21. VITAMIN B12 [Concomitant]
     Active Substance: CYANOCOBALAMIN
  22. HIZENTRA [Suspect]
     Active Substance: HUMAN IMMUNOGLOBULIN G
     Dosage: 8 G, TOT
     Route: 058
     Dates: start: 20180619, end: 20180619
  23. ACETAMINOPHEN. [Concomitant]
     Active Substance: ACETAMINOPHEN
  24. TYLENOL [Concomitant]
     Active Substance: ACETAMINOPHEN
     Indication: PREMEDICATION
     Route: 048
  25. HIZENTRA [Suspect]
     Active Substance: HUMAN IMMUNOGLOBULIN G
     Dosage: 4 G, QW
     Route: 058
     Dates: start: 201803, end: 201804
  26. HIZENTRA [Suspect]
     Active Substance: HUMAN IMMUNOGLOBULIN G
     Dosage: UNK
     Route: 065
     Dates: start: 201806, end: 201807
  27. LAMICTAL [Concomitant]
     Active Substance: LAMOTRIGINE
  28. HIZENTRA [Suspect]
     Active Substance: HUMAN IMMUNOGLOBULIN G
     Indication: PRIMARY IMMUNODEFICIENCY SYNDROME
     Dosage: 8 G, TOT
     Route: 058
     Dates: start: 2018, end: 2018

REACTIONS (21)
  - Infusion site pain [Unknown]
  - Malaise [Unknown]
  - Infusion site swelling [Unknown]
  - Infusion site haematoma [Unknown]
  - Infusion site erythema [Not Recovered/Not Resolved]
  - Injection site pain [Recovered/Resolved]
  - Chest pain [Recovered/Resolved]
  - Chest discomfort [Unknown]
  - Heart rate increased [Not Recovered/Not Resolved]
  - Injection site pruritus [Recovered/Resolved]
  - Feeling abnormal [Unknown]
  - Disorientation [Unknown]
  - Infusion site swelling [Unknown]
  - Dyspnoea [Unknown]
  - Chest discomfort [Not Recovered/Not Resolved]
  - Chest discomfort [Recovered/Resolved]
  - Infusion site swelling [Recovered/Resolved]
  - Heart rate increased [Unknown]
  - Infusion site erythema [Recovered/Resolved]
  - Fatigue [Unknown]
  - Infusion site swelling [Not Recovered/Not Resolved]

NARRATIVE: CASE EVENT DATE: 2018
